FAERS Safety Report 21349950 (Version 1)
Quarter: 2022Q3

REPORT INFORMATION
  Report Type: Spontaneous
  Country: US (occurrence: None)
  Receive Date: 20220917
  Receipt Date: 20220917
  Transmission Date: 20221026
  Serious: Yes (Disabling, Other)
  Sender: FDA-Public Use
  Company Number: None

PATIENT
  Age: 28 Year
  Sex: Female
  Weight: 65.25 kg

DRUGS (1)
  1. DEXTROAMPHET SACCHARAT, AMPHET ASPARTATE, DEXTROAMPHET SULFATE AND AMP [Suspect]
     Active Substance: AMPHETAMINE ASPARTATE\AMPHETAMINE SULFATE\DEXTROAMPHETAMINE SACCHARATE\DEXTROAMPHETAMINE SULFATE
     Indication: Narcolepsy
     Dosage: 60 TABLETAS TWICE A DAY ORAL
     Route: 048
     Dates: start: 20220906, end: 20220915

REACTIONS (5)
  - Initial insomnia [None]
  - Heart rate [None]
  - Drug ineffective [None]
  - Manufacturing issue [None]
  - Product quality issue [None]

NARRATIVE: CASE EVENT DATE: 20220908
